FAERS Safety Report 5862736-5 (Version None)
Quarter: 2008Q3

REPORT INFORMATION
  Report Type: 
  Country: None (occurrence: None)
  Receive Date: 20080826
  Receipt Date: 20080826
  Transmission Date: 20090109
  Serious: No
  Sender: FDA-Public Use
  Company Number: None

PATIENT
  Age: 23 Year
  Sex: Female
  Weight: 59.8748 kg

DRUGS (2)
  1. LAMICTAL [Suspect]
     Indication: ANOREXIA NERVOSA
     Dosage: 200 MG ONCE DAILY PO
     Route: 048
     Dates: start: 20070501, end: 20080826
  2. LAMICTAL [Suspect]
     Indication: BIPOLAR DISORDER
     Dosage: 200 MG ONCE DAILY PO
     Route: 048
     Dates: start: 20070501, end: 20080826

REACTIONS (2)
  - NAUSEA [None]
  - VOMITING [None]
